FAERS Safety Report 23988577 (Version 4)
Quarter: 2025Q1

REPORT INFORMATION
  Report Type: Spontaneous
  Country: DE (occurrence: DE)
  Receive Date: 20240619
  Receipt Date: 20250319
  Transmission Date: 20250408
  Serious: Yes (Death, Hospitalization, Other)
  Sender: AUROBINDO
  Company Number: DE-PFIZER INC-202400189142

PATIENT
  Age: 4 Month
  Sex: Male

DRUGS (14)
  1. VORICONAZOLE [Suspect]
     Active Substance: VORICONAZOLE
     Indication: Aspergillus infection
     Route: 065
  2. VORICONAZOLE [Suspect]
     Active Substance: VORICONAZOLE
     Indication: Fungal infection
  3. CASPOFUNGIN [Suspect]
     Active Substance: CASPOFUNGIN
     Indication: Aspergillus infection
     Route: 065
  4. AMPHOTERICIN B [Suspect]
     Active Substance: AMPHOTERICIN B
     Indication: Aspergillus infection
     Dosage: 3 MG/KG, DAILY
     Route: 065
  5. AMPHOTERICIN B [Suspect]
     Active Substance: AMPHOTERICIN B
     Dosage: 5 MG/KG, DAILY
     Route: 065
  6. BASILIXIMAB [Suspect]
     Active Substance: BASILIXIMAB
     Indication: Prophylaxis against transplant rejection
     Route: 065
  7. BASILIXIMAB [Suspect]
     Active Substance: BASILIXIMAB
     Indication: Immunosuppressant drug therapy
  8. TACROLIMUS [Suspect]
     Active Substance: TACROLIMUS
     Indication: Prophylaxis against transplant rejection
     Route: 065
  9. TACROLIMUS [Suspect]
     Active Substance: TACROLIMUS
     Indication: Immunosuppressant drug therapy
  10. MEROPENEM [Concomitant]
     Active Substance: MEROPENEM
     Indication: Aspergillus infection
     Route: 065
  11. MEROPENEM [Concomitant]
     Active Substance: MEROPENEM
     Indication: Antibiotic prophylaxis
  12. HUMAN IMMUNOGLOBULIN G [Concomitant]
     Active Substance: HUMAN IMMUNOGLOBULIN G
     Indication: Immunoglobulins decreased
     Route: 042
  13. LINEZOLID [Concomitant]
     Active Substance: LINEZOLID
     Indication: Aspergillus infection
     Route: 065
  14. SULFAMETHOXAZOLE\TRIMETHOPRIM [Concomitant]
     Active Substance: SULFAMETHOXAZOLE\TRIMETHOPRIM
     Indication: Aspergillus infection
     Route: 065

REACTIONS (7)
  - Mucosal haemorrhage [Fatal]
  - Drug ineffective [Fatal]
  - Sepsis [Unknown]
  - Muscle abscess [Unknown]
  - Product use issue [Unknown]
  - Oral fungal infection [Unknown]
  - Off label use [Unknown]
